FAERS Safety Report 13954600 (Version 1)
Quarter: 2017Q3

REPORT INFORMATION
  Report Type: Spontaneous
  Country: LB (occurrence: LB)
  Receive Date: 20170911
  Receipt Date: 20170911
  Transmission Date: 20171128
  Serious: Yes (Death, Hospitalization, Other)
  Sender: FDA-Public Use
  Company Number: LB-MYLANLABS-2017M1055775

PATIENT
  Age: 73 Year
  Sex: Male

DRUGS (6)
  1. PREDNISOLONE. [Suspect]
     Active Substance: PREDNISOLONE
     Indication: DIFFUSE LARGE B-CELL LYMPHOMA
     Dosage: SIX COURSES OF R CHOP
     Route: 065
     Dates: end: 200707
  2. DOXORUBICIN [Suspect]
     Active Substance: DOXORUBICIN
     Indication: DIFFUSE LARGE B-CELL LYMPHOMA
     Dosage: SIX COURSES OF R CHOP
     Route: 065
     Dates: end: 200707
  3. VINCRISTINE [Suspect]
     Active Substance: VINCRISTINE
     Indication: DIFFUSE LARGE B-CELL LYMPHOMA
     Dosage: SIX COURSES OF R CHOP
     Route: 065
     Dates: end: 200707
  4. METHOTREXATE. [Suspect]
     Active Substance: METHOTREXATE
     Indication: DIFFUSE LARGE B-CELL LYMPHOMA
     Dosage: FOUR INJECTIONS
     Route: 037
     Dates: end: 200707
  5. RITUXIMAB. [Suspect]
     Active Substance: RITUXIMAB
     Indication: DIFFUSE LARGE B-CELL LYMPHOMA
     Dosage: SIX COURSES OF R CHOP
     Route: 065
     Dates: end: 200707
  6. CYCLOPHOSPHAMIDE. [Suspect]
     Active Substance: CYCLOPHOSPHAMIDE
     Indication: DIFFUSE LARGE B-CELL LYMPHOMA
     Dosage: SIX COURSES OF R CHOP
     Route: 065
     Dates: end: 200707

REACTIONS (5)
  - General physical health deterioration [Fatal]
  - Septic shock [Fatal]
  - Adenocarcinoma gastric [Unknown]
  - Multiple organ dysfunction syndrome [Fatal]
  - Metastases to peritoneum [Unknown]

NARRATIVE: CASE EVENT DATE: 201410
